FAERS Safety Report 5320447-9 (Version None)
Quarter: 2007Q2

REPORT INFORMATION
  Report Type: 
  Country: None (occurrence: None)
  Receive Date: 20070509
  Receipt Date: 20070427
  Transmission Date: 20071010
  Serious: Yes (Hospitalization)
  Sender: FDA-Public Use
  Company Number: DE-ROCHE-477484

PATIENT
  Age: 47 Year
  Sex: Male
  Weight: 59 kg

DRUGS (3)
  1. PEG-INTERFERON ALFA 2A (RO 25-8310) [Suspect]
     Route: 058
     Dates: start: 20061207, end: 20070322
  2. PEG-INTERFERON ALFA 2A (RO 25-8310) [Suspect]
     Route: 058
     Dates: start: 20070323
  3. RIBAVIRIN [Suspect]
     Route: 048
     Dates: start: 20061207

REACTIONS (8)
  - CACHEXIA [None]
  - CONFUSIONAL STATE [None]
  - DEPRESSION [None]
  - DRUG TOXICITY [None]
  - GENERAL PHYSICAL HEALTH DETERIORATION [None]
  - LEUKOPENIA [None]
  - PYELONEPHRITIS [None]
  - PYREXIA [None]
